FAERS Safety Report 14108635 (Version 2)
Quarter: 2017Q4

REPORT INFORMATION
  Report Type: Spontaneous
  Country: US (occurrence: US)
  Receive Date: 20171019
  Receipt Date: 20171027
  Transmission Date: 20180321
  Serious: No
  Sender: FDA-Public Use
  Company Number: US-BAYER-2017-198429

PATIENT
  Age: 73 Year
  Sex: Female

DRUGS (1)
  1. ALEVE [Suspect]
     Active Substance: NAPROXEN SODIUM
     Route: 065

REACTIONS (4)
  - Product physical issue [None]
  - Poor quality drug administered [None]
  - Adverse drug reaction [Recovered/Resolved]
  - Expired product administered [None]
